FAERS Safety Report 4488158-X (Version None)
Quarter: 2004Q4

REPORT INFORMATION
  Report Type: 
  Country: None (occurrence: None)
  Receive Date: 20041028
  Receipt Date: 20041025
  Transmission Date: 20050328
  Serious: Yes (Death, Other)
  Sender: FDA-Public Use
  Company Number: PHBS2004DE14277

PATIENT
  Age: 61 Year
  Sex: Male

DRUGS (5)
  1. CYCLOSPORINE [Suspect]
     Indication: STEM CELL TRANSPLANT
     Route: 065
  2. URBASON [Suspect]
     Indication: STEM CELL TRANSPLANT
     Route: 065
  3. MYCOPHENOLATE MOFETIL [Suspect]
     Indication: STEM CELL TRANSPLANT
  4. ANTIBIOTICS [Concomitant]
  5. AMPHOTERICIN B [Concomitant]

REACTIONS (14)
  - ANAEMIA [None]
  - ASPERGILLOSIS [None]
  - BRONCHOPULMONARY ASPERGILLOSIS [None]
  - C-REACTIVE PROTEIN INCREASED [None]
  - DRY SKIN [None]
  - EXANTHEM [None]
  - FUNGAL SKIN INFECTION [None]
  - GRAFT VERSUS HOST DISEASE [None]
  - LEUKOCYTOSIS [None]
  - PANOPHTHALMITIS [None]
  - PYREXIA [None]
  - SUBCUTANEOUS NODULE [None]
  - THERAPY NON-RESPONDER [None]
  - THROMBOCYTOPENIA [None]
